FAERS Safety Report 8020544-3 (Version None)
Quarter: 2012Q1

REPORT INFORMATION
  Report Type: 
  Country: None (occurrence: None)
  Receive Date: 20120103
  Receipt Date: 20111219
  Transmission Date: 20120608
  Serious: Yes (Death, Hospitalization)
  Sender: FDA-Public Use
  Company Number: US-ACTELION-A-US2011-56195

PATIENT

DRUGS (14)
  1. TRACLEER [Suspect]
     Indication: PULMONARY ARTERIAL HYPERTENSION
     Dosage: 62.5 MG, BID
     Route: 048
     Dates: start: 20111106
  2. PREDNISONE TAB [Concomitant]
  3. BISACODYL [Concomitant]
  4. FERROUS SULFATE TAB [Concomitant]
  5. CALCIUM CARBONATE [Concomitant]
  6. DIGOXIN [Concomitant]
  7. ALLOPURINOL [Concomitant]
  8. DOCUSATE [Concomitant]
  9. TRACLEER [Suspect]
     Dosage: 62.5 MG, BID
     Route: 048
     Dates: start: 20090927, end: 20091023
  10. ACETAMINOPHEN [Concomitant]
  11. ALBUTEROL [Concomitant]
  12. TRACLEER [Suspect]
     Dosage: 125 MG, BID
     Route: 048
     Dates: start: 20091024, end: 20111105
  13. ADCIRCA [Concomitant]
  14. ONDANSETRON [Concomitant]

REACTIONS (13)
  - MALAISE [None]
  - BLOOD CREATININE INCREASED [None]
  - OEDEMA [None]
  - PYREXIA [None]
  - MENTAL STATUS CHANGES [None]
  - BLOOD UREA INCREASED [None]
  - COUGH [None]
  - PNEUMONIA [None]
  - DYSPNOEA [None]
  - TROPONIN I INCREASED [None]
  - RENAL FAILURE [None]
  - CARDIAC FAILURE CONGESTIVE [None]
  - WEIGHT INCREASED [None]
